FAERS Safety Report 18782316 (Version 1)
Quarter: 2021Q1

REPORT INFORMATION
  Report Type: Spontaneous
  Country: US (occurrence: US)
  Receive Date: 20210125
  Receipt Date: 20210125
  Transmission Date: 20210419
  Serious: Yes (Other)
  Sender: FDA-Public Use
  Company Number: US-ALLERGAN-2009460US

PATIENT
  Sex: Female
  Weight: 68.04 kg

DRUGS (3)
  1. CYCLOSPORINE 0.05% UNIT DOSE [Suspect]
     Active Substance: CYCLOSPORINE
     Indication: DRY EYE
     Dosage: 2 GTT, QD
     Dates: start: 2016
  2. CYCLOSPORINE 0.05% UNIT DOSE [Suspect]
     Active Substance: CYCLOSPORINE
     Indication: WOUND TREATMENT
     Dosage: UNK
     Route: 061
  3. TEGADERM [Concomitant]
     Active Substance: 2-HYDROXYETHYL METHACRYLATE\DEVICE
     Indication: WOUND TREATMENT

REACTIONS (1)
  - Off label use [Unknown]

NARRATIVE: CASE EVENT DATE: 2017
